FAERS Safety Report 4699334-5 (Version None)
Quarter: 2005Q2

REPORT INFORMATION
  Report Type: 
  Country: None (occurrence: None)
  Receive Date: 20050624
  Receipt Date: 20050616
  Transmission Date: 20051028
  Serious: Yes (Life-Threatening)
  Sender: FDA-Public Use
  Company Number: GB-GLAXOSMITHKLINE-B0384922A

PATIENT
  Age: 43 Year
  Sex: Male
  Weight: 70 kg

DRUGS (1)
  1. ZYBAN [Suspect]
     Indication: SMOKING CESSATION THERAPY
     Dosage: 150MG PER DAY
     Route: 048
     Dates: start: 20050531, end: 20050610

REACTIONS (2)
  - COORDINATION ABNORMAL [None]
  - ROAD TRAFFIC ACCIDENT [None]
